FAERS Safety Report 5089704-8 (Version None)
Quarter: 2006Q3

REPORT INFORMATION
  Report Type: 
  Country: None (occurrence: None)
  Receive Date: 20060828
  Receipt Date: 20020701
  Transmission Date: 20061208
  Serious: Yes (Death, Life-Threatening)
  Sender: FDA-Public Use
  Company Number: PHFR2002GB02096

PATIENT
  Age: 80 Year
  Sex: Male
  Weight: 75 kg

DRUGS (8)
  1. DICLOFENAC [Suspect]
     Indication: PAIN IN EXTREMITY
     Dosage: 50 MG, TID
     Route: 048
     Dates: end: 20020613
  2. BURINEX [Suspect]
     Indication: CARDIAC FAILURE CONGESTIVE
     Dosage: QD - TID
     Route: 048
     Dates: start: 20020101, end: 20020613
  3. LISINOPRIL [Suspect]
     Indication: CARDIAC FAILURE CONGESTIVE
     Dosage: 5 MG, QD
     Route: 048
     Dates: start: 19990101, end: 20020613
  4. QUININE SULFATE [Concomitant]
     Indication: MUSCLE SPASMS
     Dosage: 300 MG, QD
     Route: 048
     Dates: start: 20010315, end: 20020612
  5. ACETAMINOPHEN W/ CODEINE [Concomitant]
     Indication: PAIN
     Dosage: 500 MG, QID
     Route: 048
     Dates: end: 20020612
  6. ASPIRIN [Concomitant]
     Indication: PROPHYLAXIS
     Dosage: 75 MG, QD
     Route: 048
     Dates: end: 20020612
  7. LANSOPRAZOLE [Concomitant]
     Indication: HIATUS HERNIA
     Dosage: 30 MG, QD
     Route: 048
     Dates: end: 20020612
  8. BISOPROLOL FUMARATE [Concomitant]
     Indication: CARDIAC FAILURE CONGESTIVE
     Dosage: 2.5 MG, QD
     Route: 048
     Dates: start: 20020411, end: 20020425

REACTIONS (8)
  - BLOOD CREATININE INCREASED [None]
  - BLOOD UREA INCREASED [None]
  - CARDIAC ARREST [None]
  - DEHYDRATION [None]
  - HYPERKALAEMIA [None]
  - MYOCARDIAL ISCHAEMIA [None]
  - RENAL FAILURE [None]
  - VOMITING [None]
